FAERS Safety Report 21548249 (Version 2)
Quarter: 2022Q4

REPORT INFORMATION
  Report Type: Spontaneous
  Country: US (occurrence: US)
  Receive Date: 20221103
  Receipt Date: 20221118
  Transmission Date: 20230113
  Serious: Yes (Hospitalization)
  Sender: FDA-Public Use
  Company Number: US-TEVA-2022-US-2821403

PATIENT
  Age: 7 Decade
  Sex: Male

DRUGS (9)
  1. AMIODARONE [Suspect]
     Active Substance: AMIODARONE
     Indication: Ventricular tachycardia
     Route: 065
  2. METOPROLOL [Suspect]
     Active Substance: METOPROLOL
     Indication: Ventricular tachycardia
     Route: 065
  3. MEXILETINE [Suspect]
     Active Substance: MEXILETINE
     Indication: Ventricular tachycardia
     Route: 065
  4. WARFARIN [Suspect]
     Active Substance: WARFARIN
     Indication: Ventricular tachycardia
     Route: 065
  5. WARFARIN [Suspect]
     Active Substance: WARFARIN
     Indication: Anticoagulant therapy
  6. LIDOCAINE [Suspect]
     Active Substance: LIDOCAINE
     Indication: Ventricular tachycardia
     Route: 050
  7. BUPIVACAINE [Suspect]
     Active Substance: BUPIVACAINE
     Indication: Ventricular tachycardia
     Dosage: BUPIVACAINE: 0.12 %; UNIT DOSE : 4 ML , FREQUENCY TIME : 1 HOUR
     Route: 050
  8. BUPIVACAINE [Suspect]
     Active Substance: BUPIVACAINE
     Indication: Local anaesthesia
  9. QUINIDINE [Concomitant]
     Active Substance: QUINIDINE
     Indication: Ventricular tachycardia
     Route: 065

REACTIONS (2)
  - Drug ineffective [Unknown]
  - Dysphonia [Recovered/Resolved]
